FAERS Safety Report 11612193 (Version 2)
Quarter: 2016Q2

REPORT INFORMATION
  Report Type: Report from Study
  Country: BR (occurrence: BR)
  Receive Date: 20151008
  Receipt Date: 20160505
  Transmission Date: 20160815
  Serious: Yes (Hospitalization)
  Sender: FDA-Public Use
  Company Number: PHHY2015BR120639

PATIENT
  Sex: Male
  Weight: 33 kg

DRUGS (2)
  1. EXJADE [Suspect]
     Active Substance: DEFERASIROX
     Indication: SICKLE CELL ANAEMIA
     Dosage: 250 MG, QD
     Route: 065
     Dates: start: 2014
  2. EXJADE [Suspect]
     Active Substance: DEFERASIROX
     Dosage: 1 DF, QOD
     Route: 065

REACTIONS (8)
  - Pneumonia [Unknown]
  - Drug prescribing error [Unknown]
  - Cardiomegaly [Unknown]
  - Hepatomegaly [Unknown]
  - Abdominal distension [Unknown]
  - Splenomegaly [Unknown]
  - Hepatic siderosis [Unknown]
  - Drug ineffective [Unknown]
